FAERS Safety Report 11199677 (Version 2)
Quarter: 2015Q3

REPORT INFORMATION
  Report Type: Spontaneous
  Country: US (occurrence: US)
  Receive Date: 20150618
  Receipt Date: 20150729
  Transmission Date: 20151125
  Serious: Yes (Hospitalization)
  Sender: FDA-Public Use
  Company Number: US-CELGENEUS-USA-2015062303

PATIENT
  Age: 71 Year
  Sex: Female

DRUGS (3)
  1. KEFLEX [Concomitant]
     Active Substance: CEPHALEXIN
     Indication: BACTERAEMIA
     Route: 065
     Dates: start: 201502
  2. THALOMID [Suspect]
     Active Substance: THALIDOMIDE
     Indication: GASTROINTESTINAL HAEMORRHAGE
     Route: 048
     Dates: start: 20150505
  3. THALOMID [Suspect]
     Active Substance: THALIDOMIDE
     Indication: ANAEMIA
     Route: 048
     Dates: start: 201503

REACTIONS (1)
  - Acute kidney injury [Recovered/Resolved]

NARRATIVE: CASE EVENT DATE: 20150528
